FAERS Safety Report 8449444-1 (Version None)
Quarter: 2012Q2

REPORT INFORMATION
  Report Type: 
  Country: None (occurrence: None)
  Receive Date: 20120619
  Receipt Date: 20120608
  Transmission Date: 20120825
  Serious: Yes (Death, Hospitalization)
  Sender: FDA-Public Use
  Company Number: DE-BAXTER-2012BAX002230

PATIENT
  Age: 59 Year
  Sex: Male

DRUGS (6)
  1. PHYSIONEAL 40 GLUCOSE 3,86 % W/V 38,6 MG/ML PERITONEALDIALYSELOSUNG [Suspect]
     Route: 033
     Dates: start: 20060610
  2. VITAMIN D [Concomitant]
     Route: 065
  3. PHYSIONEAL 40 GLUCOSE 2,27 % W/V 22,7 MG/ML PERITONEALDIALYSELOSUNG [Suspect]
     Route: 033
     Dates: start: 20060610
  4. ERYTHROPOETIN [Concomitant]
     Route: 065
  5. NUTRINEAL [Suspect]
     Route: 033
     Dates: start: 20060610
  6. EXTRANEAL [Suspect]
     Route: 033
     Dates: start: 20060610

REACTIONS (3)
  - STAPHYLOCOCCUS TEST POSITIVE [None]
  - PERITONITIS BACTERIAL [None]
  - SEPSIS [None]
